FAERS Safety Report 10627099 (Version 2)
Quarter: 2015Q1

REPORT INFORMATION
  Report Type: Report from Study
  Country: US (occurrence: US)
  Receive Date: 20141204
  Receipt Date: 20150129
  Transmission Date: 20150720
  Serious: Yes (Hospitalization, Congenital Anomaly, Other)
  Sender: FDA-Public Use
  Company Number: US-ABBVIE-14P-163-1314389-00

PATIENT
  Age: 1 Day
  Sex: Female

DRUGS (1)
  1. HUMIRA [Suspect]
     Active Substance: ADALIMUMAB
     Indication: MATERNAL EXPOSURE TIMING UNSPECIFIED
     Route: 064

REACTIONS (9)
  - Neonatal hypoxia [Unknown]
  - Bradycardia [Unknown]
  - Premature baby [Unknown]
  - Hypermagnesaemia [Unknown]
  - Temperature regulation disorder [Unknown]
  - Haemangioma congenital [Not Recovered/Not Resolved]
  - Jaundice [Unknown]
  - Apnoea neonatal [Unknown]
  - Foetal exposure during pregnancy [Unknown]

NARRATIVE: CASE EVENT DATE: 20121129
